FAERS Safety Report 12505820 (Version 3)
Quarter: 2016Q3

REPORT INFORMATION
  Report Type: Spontaneous
  Country: US (occurrence: US)
  Receive Date: 20160628
  Receipt Date: 20160826
  Transmission Date: 20161109
  Serious: Yes (Death, Hospitalization)
  Sender: FDA-Public Use
  Company Number: US-INCYTE CORPORATION-2016IN003760

PATIENT
  Age: 41 Year
  Sex: Male
  Weight: 73 kg

DRUGS (1)
  1. JAKAFI [Suspect]
     Active Substance: RUXOLITINIB
     Indication: MYELOFIBROSIS
     Dosage: 5 MG, BID
     Route: 048
     Dates: start: 20160521, end: 20160604

REACTIONS (7)
  - Multiple organ dysfunction syndrome [Fatal]
  - Connective tissue disorder [Not Recovered/Not Resolved]
  - Myeloproliferative neoplasm [Not Recovered/Not Resolved]
  - Respiratory failure [Fatal]
  - Renal failure [Unknown]
  - Autoimmune disorder [Fatal]
  - Hepatic failure [Unknown]

NARRATIVE: CASE EVENT DATE: 20160604
